FAERS Safety Report 8250426-3 (Version None)
Quarter: 2012Q2

REPORT INFORMATION
  Report Type: 
  Country: None (occurrence: None)
  Receive Date: 20120402
  Receipt Date: 20120323
  Transmission Date: 20120825
  Serious: Yes (Other)
  Sender: FDA-Public Use
  Company Number: US-GENZYME-RENA-1001478

PATIENT

DRUGS (1)
  1. RENVELA [Suspect]
     Indication: HYPERPHOSPHATAEMIA
     Dosage: 2.4 G, QD
     Route: 048
     Dates: start: 20111117, end: 20120317

REACTIONS (4)
  - NAUSEA [None]
  - DYSPEPSIA [None]
  - PANCREATITIS [None]
  - ABDOMINAL PAIN [None]
